FAERS Safety Report 6532956-5 (Version None)
Quarter: 2010Q1

REPORT INFORMATION
  Report Type: 
  Country: None (occurrence: None)
  Receive Date: 20100111
  Receipt Date: 20100107
  Transmission Date: 20100710
  Serious: Yes (Hospitalization, Other)
  Sender: FDA-Public Use
  Company Number: ES-BAYER-200932081GPV

PATIENT
  Age: 58 Year
  Sex: Male
  Weight: 68 kg

DRUGS (9)
  1. CAMPATH [Suspect]
     Indication: STEM CELL TRANSPLANT
     Dosage: DAYS -8 TO -4 PRE-TRANSPLANT
     Route: 042
     Dates: start: 20090724, end: 20090728
  2. FLUDARABINE [Suspect]
     Indication: STEM CELL TRANSPLANT
     Route: 042
     Dates: start: 20090727, end: 20090728
  3. MELFALAN [Suspect]
     Indication: STEM CELL TRANSPLANT
     Route: 042
     Dates: start: 20090728, end: 20090729
  4. CYCLOSPORINE [Suspect]
     Indication: PROPHYLAXIS AGAINST GRAFT VERSUS HOST DISEASE
  5. ALOPURINOL [Concomitant]
     Route: 048
  6. ACFOL [Concomitant]
     Route: 048
     Dates: start: 20090818
  7. OMEPRAZOL [Concomitant]
     Indication: PROPHYLAXIS
     Route: 048
     Dates: start: 20090924
  8. SEPTRIN [Concomitant]
     Route: 048
  9. NEORECORMON [Concomitant]
     Route: 058
     Dates: start: 20090924

REACTIONS (10)
  - DEVICE RELATED INFECTION [None]
  - DYSPNOEA [None]
  - MULTI-ORGAN FAILURE [None]
  - PERICARDIAL HAEMORRHAGE [None]
  - PNEUMONIA BACTERIAL [None]
  - PNEUMONIA KLEBSIELLA [None]
  - PYREXIA [None]
  - RENAL FAILURE ACUTE [None]
  - RESPIRATORY FAILURE [None]
  - SEPTIC SHOCK [None]
